FAERS Safety Report 19506529 (Version 1)
Quarter: 2021Q3

REPORT INFORMATION
  Report Type: Spontaneous
  Country: US (occurrence: US)
  Receive Date: 20210708
  Receipt Date: 20210708
  Transmission Date: 20211014
  Serious: No
  Sender: FDA-Public Use
  Company Number: US-ELI_LILLY_AND_COMPANY-US202107001277

PATIENT

DRUGS (1)
  1. BAQSIMI [Suspect]
     Active Substance: GLUCAGON
     Indication: PRODUCT USED FOR UNKNOWN INDICATION
     Dosage: 3 MG, UNKNOWN
     Route: 065
     Dates: start: 20210624

REACTIONS (6)
  - Burning sensation [Unknown]
  - Rhinalgia [Unknown]
  - Blood glucose increased [Unknown]
  - Headache [Unknown]
  - Periorbital swelling [Unknown]
  - Nausea [Unknown]
